FAERS Safety Report 9087557 (Version 1)
Quarter: 2013Q1

REPORT INFORMATION
  Report Type: Spontaneous
  Country: US (occurrence: US)
  Receive Date: 20130201
  Receipt Date: 20130201
  Transmission Date: 20140127
  Serious: Yes (Hospitalization, Other)
  Sender: FDA-Public Use
  Company Number: US-009507513-1301USA014304

PATIENT
  Sex: Female

DRUGS (1)
  1. RIBAVIRIN [Suspect]
     Indication: HEPATITIS C
     Dosage: UNK
     Route: 048
     Dates: start: 19950106, end: 19950203

REACTIONS (12)
  - Psychotic disorder [Unknown]
  - Confusional state [Unknown]
  - Suicide attempt [Unknown]
  - Depression [Unknown]
  - Nervous system disorder [Unknown]
  - Musculoskeletal disorder [Unknown]
  - Gait disturbance [Unknown]
  - Ataxia [Unknown]
  - Depression [Unknown]
  - Tremor [Unknown]
  - Muscle spasms [Unknown]
  - Weight decreased [Unknown]
